FAERS Safety Report 5941113-2 (Version None)
Quarter: 2008Q4

REPORT INFORMATION
  Report Type: 
  Country: None (occurrence: None)
  Receive Date: 20081104
  Receipt Date: 20081020
  Transmission Date: 20090506
  Serious: Yes (Life-Threatening, Hospitalization)
  Sender: FDA-Public Use
  Company Number: AT-GENENTECH-270789

PATIENT
  Age: 52 Year
  Sex: Female

DRUGS (4)
  1. MABTHERA [Suspect]
     Indication: POLYARTHRITIS
     Dosage: 1000 MG, UNK
     Route: 042
     Dates: start: 20081017, end: 20081017
  2. SOLU-DACORTIN [Concomitant]
     Indication: DRUG USE FOR UNKNOWN INDICATION
     Dosage: UNK
     Dates: start: 20081017, end: 20081017
  3. MEXALEN [Concomitant]
     Indication: DRUG USE FOR UNKNOWN INDICATION
     Dosage: UNK
     Dates: start: 20081017, end: 20081017
  4. DIBONDRIN [Concomitant]
     Indication: DRUG USE FOR UNKNOWN INDICATION
     Dosage: UNK
     Dates: start: 20081017, end: 20081017

REACTIONS (3)
  - HEPATIC ENZYME INCREASED [None]
  - PLATELET COUNT DECREASED [None]
  - SEPSIS [None]
